FAERS Safety Report 4319158-8 (Version None)
Quarter: 2004Q1

REPORT INFORMATION
  Report Type: 
  Country: None (occurrence: None)
  Receive Date: 20040318
  Receipt Date: 20010905
  Transmission Date: 20041129
  Serious: Yes (Hospitalization)
  Sender: FDA-Public Use
  Company Number: 64886-2001-23

PATIENT
  Age: 10 Year
  Sex: Male

DRUGS (2)
  1. METHOTREXATE [Suspect]
     Indication: ACUTE LYMPHOCYTIC LEUKAEMIA
     Dosage: OVER 24 HR IV
     Route: 042
  2. LEUCOVORIN [Concomitant]

REACTIONS (5)
  - BLISTER [None]
  - EYE SWELLING [None]
  - RASH ERYTHEMATOUS [None]
  - STOMATITIS [None]
  - THERMAL BURN [None]
